FAERS Safety Report 21404911 (Version 1)
Quarter: 2022Q4

REPORT INFORMATION
  Report Type: Spontaneous
  Country: US (occurrence: None)
  Receive Date: 20221001
  Receipt Date: 20221001
  Transmission Date: 20230113
  Serious: Yes (Hospitalization)
  Sender: FDA-Public Use
  Company Number: None

PATIENT
  Age: 52 Year
  Sex: Female
  Weight: 99 kg

DRUGS (3)
  1. TAXOL [Suspect]
     Active Substance: PACLITAXEL
     Dates: end: 20220914
  2. PERTUZUMAB [Suspect]
     Active Substance: PERTUZUMAB
     Dates: end: 20220831
  3. TRASTUZUMAB [Suspect]
     Active Substance: TRASTUZUMAB
     Dates: end: 20220831

REACTIONS (14)
  - Acute kidney injury [None]
  - Hypotension [None]
  - Dilatation intrahepatic duct acquired [None]
  - Pancreatic cyst [None]
  - Nausea [None]
  - Vomiting [None]
  - Diarrhoea [None]
  - Culture urine positive [None]
  - Escherichia infection [None]
  - Enterococcal infection [None]
  - Urinary tract infection [None]
  - Biliary dilatation [None]
  - Haemorrhoids [None]
  - Anal fissure [None]

NARRATIVE: CASE EVENT DATE: 20220921
